FAERS Safety Report 6384668-9 (Version None)
Quarter: 2009Q4

REPORT INFORMATION
  Report Type: 
  Country: None (occurrence: None)
  Receive Date: 20091001
  Receipt Date: 20090924
  Transmission Date: 20100525
  Serious: Yes (Hospitalization)
  Sender: FDA-Public Use
  Company Number: PHHY2009MX39010

PATIENT
  Age: 85 Year
  Sex: Female

DRUGS (2)
  1. DIOVAN [Suspect]
     Indication: HYPERTENSION
     Dosage: 1 TABLET (320 MG) PER DAY
     Dates: start: 20061001, end: 20090901
  2. DIOVAN [Suspect]
     Dosage: 1 TABLET (320 MG) PER DAY
     Dates: start: 20090908

REACTIONS (2)
  - HYPOTENSION [None]
  - ILEUS PARALYTIC [None]
